FAERS Safety Report 9969438 (Version 2)
Quarter: 2014Q1

REPORT INFORMATION
  Report Type: Spontaneous
  Country: CN (occurrence: CN)
  Receive Date: 20140306
  Receipt Date: 20140306
  Transmission Date: 20141002
  Serious: Yes (Hospitalization)
  Sender: FDA-Public Use
  Company Number: CN-ASTRAZENECA-2014SE00915

PATIENT
  Age: 49 Year
  Sex: Male

DRUGS (4)
  1. BRILINTA [Suspect]
     Indication: CORONARY ARTERIAL STENT INSERTION
     Route: 048
     Dates: start: 201306
  2. ASPIRIN [Concomitant]
  3. GLUCOBAY [Concomitant]
  4. BETALOC [Concomitant]

REACTIONS (1)
  - Cardiac discomfort [Recovered/Resolved]
